FAERS Safety Report 8963680 (Version 1)
Quarter: 2012Q4

REPORT INFORMATION
  Report Type: Report from Study
  Country: US (occurrence: US)
  Receive Date: 20121213
  Receipt Date: 20121213
  Transmission Date: 20130627
  Serious: Yes (Hospitalization, Other)
  Sender: FDA-Public Use
  Company Number: US-ABBOTT-12P-163-1016007-00

PATIENT
  Age: 53 None
  Sex: Male

DRUGS (19)
  1. HUMIRA [Suspect]
     Indication: CROHN^S DISEASE
     Dates: start: 2010, end: 2010
  2. HUMIRA [Suspect]
     Dosage: two weeks after initial dose
     Dates: start: 2010, end: 2010
  3. HUMIRA [Suspect]
     Dosage: On hold
     Dates: start: 2010, end: 20100303
  4. HUMIRA [Suspect]
     Dates: start: 20121201, end: 20121201
  5. CELLCEPT [Suspect]
     Indication: LIVER TRANSPLANT
     Dates: start: 201206
  6. PREDNISONE [Concomitant]
     Indication: PRODUCT USED FOR UNKNOWN INDICATION
  7. CODEINE [Concomitant]
     Indication: PRODUCT USED FOR UNKNOWN INDICATION
  8. RECLAST [Concomitant]
     Indication: PRODUCT USED FOR UNKNOWN INDICATION
  9. BUSPIRONE [Concomitant]
     Indication: PRODUCT USED FOR UNKNOWN INDICATION
  10. VITAMIN B 12 [Concomitant]
     Indication: PRODUCT USED FOR UNKNOWN INDICATION
  11. TACROLIMUS [Concomitant]
     Indication: PRODUCT USED FOR UNKNOWN INDICATION
  12. IRON [Concomitant]
     Indication: PRODUCT USED FOR UNKNOWN INDICATION
  13. VITAMIN D [Concomitant]
     Indication: PRODUCT USED FOR UNKNOWN INDICATION
  14. LIALDA [Concomitant]
     Indication: PRODUCT USED FOR UNKNOWN INDICATION
  15. CITRACAL [Concomitant]
     Indication: PRODUCT USED FOR UNKNOWN INDICATION
  16. MAGNESIUM OXIDE [Concomitant]
     Indication: PRODUCT USED FOR UNKNOWN INDICATION
  17. ENTOCORT [Concomitant]
     Indication: CROHN^S DISEASE
     Dates: end: 201207
  18. ENTOCORT [Concomitant]
     Dates: start: 201209
  19. XIFAXAN [Concomitant]
     Indication: PRODUCT USED FOR UNKNOWN INDICATION

REACTIONS (24)
  - Urine output decreased [Recovered/Resolved]
  - Gastrointestinal disorder [Recovered/Resolved]
  - Pneumatosis [Recovered/Resolved]
  - Faeces discoloured [Recovered/Resolved]
  - Diarrhoea [Recovered/Resolved]
  - Malnutrition [Recovering/Resolving]
  - Flatulence [Recovered/Resolved]
  - Gastrointestinal hypermotility [Recovered/Resolved]
  - Gastrointestinal disorder [Recovered/Resolved]
  - Failure to thrive [Recovering/Resolving]
  - Diarrhoea [Not Recovered/Not Resolved]
  - Dehydration [Recovered/Resolved]
  - Crohn^s disease [Recovered/Resolved]
  - Abdominal pain [Recovered/Resolved]
  - Diarrhoea [Recovered/Resolved]
  - Dehydration [Recovered/Resolved]
  - Colitis [Unknown]
  - Drug ineffective [Not Recovered/Not Resolved]
  - Abdominal distension [Recovered/Resolved]
  - Viral infection [Recovered/Resolved]
  - Gastrointestinal infection [Recovered/Resolved]
  - Dyspepsia [Recovered/Resolved]
  - Enteritis [Unknown]
  - Animal bite [Recovered/Resolved]
